FAERS Safety Report 16596558 (Version 5)
Quarter: 2020Q3

REPORT INFORMATION
  Report Type: Spontaneous
  Country: US (occurrence: US)
  Receive Date: 20190719
  Receipt Date: 20200929
  Transmission Date: 20201102
  Serious: Yes (Other)
  Sender: FDA-Public Use
  Company Number: US-GILEAD-2019-0418465

PATIENT
  Age: 38 Year
  Sex: Male
  Weight: 87.98 kg

DRUGS (13)
  1. PREZISTA [Concomitant]
     Active Substance: DARUNAVIR ETHANOLATE
  2. GENVOYA [Concomitant]
     Active Substance: COBICISTAT\ELVITEGRAVIR\EMTRICITABINE\TENOFOVIR ALAFENAMIDE FUMARATE
     Indication: HIV INFECTION
     Dosage: UNK
     Dates: start: 2018
  3. TESTOSTERONE. [Concomitant]
     Active Substance: TESTOSTERONE
  4. ABILIFY [Concomitant]
     Active Substance: ARIPIPRAZOLE
     Dosage: UNK
  5. PROPECIA [Concomitant]
     Active Substance: FINASTERIDE
     Dosage: UNK
  6. SEROQUEL [Concomitant]
     Active Substance: QUETIAPINE FUMARATE
  7. TRUVADA [Suspect]
     Active Substance: EMTRICITABINE\TENOFOVIR DISOPROXIL FUMARATE
     Indication: HIV INFECTION
     Dosage: UNK
     Route: 048
     Dates: start: 2008, end: 2016
  8. HCTZ [Concomitant]
     Active Substance: HYDROCHLOROTHIAZIDE
  9. NEUROTIN [GABAPENTIN] [Concomitant]
  10. TRUVADA [Suspect]
     Active Substance: EMTRICITABINE\TENOFOVIR DISOPROXIL FUMARATE
     Dosage: UNK
     Route: 048
     Dates: start: 2016, end: 2018
  11. NORVIR [Concomitant]
     Active Substance: RITONAVIR
  12. NORCO [Concomitant]
     Active Substance: ACETAMINOPHEN\HYDROCODONE BITARTRATE
  13. FLEXERIL [CEFIXIME] [Concomitant]
     Active Substance: CEFIXIME

REACTIONS (21)
  - Arthralgia [Not Recovered/Not Resolved]
  - Pain [Not Recovered/Not Resolved]
  - Anhedonia [Not Recovered/Not Resolved]
  - Spinal osteoarthritis [Unknown]
  - Osteoarthritis [Not Recovered/Not Resolved]
  - Multiple fractures [Unknown]
  - Bone disorder [Unknown]
  - Economic problem [Not Recovered/Not Resolved]
  - Ankle fracture [Not Recovered/Not Resolved]
  - HIV infection [Unknown]
  - Kyphosis [Unknown]
  - Bone density decreased [Unknown]
  - Emotional distress [Not Recovered/Not Resolved]
  - Back pain [Not Recovered/Not Resolved]
  - Scoliosis [Unknown]
  - Neck pain [Not Recovered/Not Resolved]
  - Post-traumatic stress disorder [Not Recovered/Not Resolved]
  - Anxiety [Not Recovered/Not Resolved]
  - Loss of personal independence in daily activities [Not Recovered/Not Resolved]
  - Osteochondrosis [Unknown]
  - Intervertebral disc degeneration [Unknown]

NARRATIVE: CASE EVENT DATE: 2008
